FAERS Safety Report 24874964 (Version 1)
Quarter: 2025Q1

REPORT INFORMATION
  Report Type: Spontaneous
  Country: US (occurrence: US)
  Receive Date: 20250122
  Receipt Date: 20250122
  Transmission Date: 20250409
  Serious: No
  Sender: EAGLE
  Company Number: TEVA-US-04Sep2024-36139

PATIENT
  Age: 40 Year
  Sex: Male
  Weight: 60.2 kg

DRUGS (2)
  1. BENDEKA [Suspect]
     Active Substance: BENDAMUSTINE HYDROCHLORIDE
     Indication: Follicular lymphoma
     Route: 042
     Dates: start: 20240822
  2. RIABNI [Concomitant]
     Active Substance: RITUXIMAB-ARRX
     Indication: Follicular lymphoma
     Route: 042
     Dates: start: 20240822

REACTIONS (1)
  - Infusion related hypersensitivity reaction [Unknown]

NARRATIVE: CASE EVENT DATE: 20240101
